FAERS Safety Report 10395662 (Version 1)
Quarter: 2014Q3

REPORT INFORMATION
  Report Type: Spontaneous
  Country: US (occurrence: US)
  Receive Date: 20140820
  Receipt Date: 20140820
  Transmission Date: 20150326
  Serious: No
  Sender: FDA-Public Use
  Company Number: US-ASTRAZENECA-2014SE58386

PATIENT
  Age: 67 Year
  Sex: Female
  Weight: 49 kg

DRUGS (8)
  1. RHINOCORT AQUA [Suspect]
     Active Substance: BUDESONIDE
     Indication: NASAL POLYPS
     Dosage: 1 SPRAY EACH NOSTRIL DAILY
     Route: 045
     Dates: start: 2012, end: 2012
  2. RHINOCORT AQUA [Suspect]
     Active Substance: BUDESONIDE
     Indication: NASAL POLYPS
     Dosage: 32MCG, 1 SPRAY EACH NOSTRIL BID
     Route: 045
     Dates: start: 201312
  3. RHINOCORT AQUA [Suspect]
     Active Substance: BUDESONIDE
     Indication: NASAL CONGESTION
     Dosage: 32MCG, 1 SPRAY EACH NOSTRIL BID
     Route: 045
     Dates: start: 201312
  4. RHINOCORT AQUA [Suspect]
     Active Substance: BUDESONIDE
     Indication: NASAL CONGESTION
     Dosage: 32MCG, 1 SPRAY EACH NOSTRIL BID
     Route: 045
     Dates: start: 1990, end: 2012
  5. RHINOCORT AQUA [Suspect]
     Active Substance: BUDESONIDE
     Indication: NASAL POLYPS
     Dosage: 32MCG, 1 SPRAY EACH NOSTRIL BID
     Route: 045
     Dates: start: 1990, end: 2012
  6. SYMBICORT [Suspect]
     Active Substance: BUDESONIDE\FORMOTEROL FUMARATE DIHYDRATE
     Indication: COUGH
     Dosage: 160/4.5, 2 PUFFS BID
     Route: 055
     Dates: start: 20140702, end: 20140724
  7. SYMBICORT [Suspect]
     Active Substance: BUDESONIDE\FORMOTEROL FUMARATE DIHYDRATE
     Indication: ASTHMA
     Dosage: 160/4.5, 2 PUFFS BID
     Route: 055
     Dates: start: 20140702, end: 20140724
  8. RHINOCORT AQUA [Suspect]
     Active Substance: BUDESONIDE
     Indication: NASAL CONGESTION
     Dosage: 1 SPRAY EACH NOSTRIL DAILY
     Route: 045
     Dates: start: 2012, end: 2012

REACTIONS (6)
  - Parosmia [Not Recovered/Not Resolved]
  - Off label use [Recovered/Resolved]
  - Nasal oedema [Not Recovered/Not Resolved]
  - Dysgeusia [Not Recovered/Not Resolved]
  - Intentional product misuse [Not Recovered/Not Resolved]
  - Secretion discharge [Not Recovered/Not Resolved]

NARRATIVE: CASE EVENT DATE: 1990
